FAERS Safety Report 6308233-4 (Version None)
Quarter: 2009Q3

REPORT INFORMATION
  Report Type: 
  Country: None (occurrence: None)
  Receive Date: 20090813
  Receipt Date: 20090804
  Transmission Date: 20100115
  Serious: Yes (Death)
  Sender: FDA-Public Use
  Company Number: US-PFIZER INC-2009232329

PATIENT
  Sex: Female

DRUGS (2)
  1. FELDENE [Suspect]
  2. CHANTIX [Suspect]

REACTIONS (1)
  - NON-SMALL CELL LUNG CANCER [None]
